FAERS Safety Report 25555841 (Version 2)
Quarter: 2025Q3

REPORT INFORMATION
  Report Type: Spontaneous
  Country: US (occurrence: US)
  Receive Date: 20250715
  Receipt Date: 20250908
  Transmission Date: 20251021
  Serious: No
  Sender: SANOFI AVENTIS
  Company Number: US-SA-2025SA197027

PATIENT
  Age: 67 Year
  Sex: Female

DRUGS (1)
  1. DUPIXENT [Suspect]
     Active Substance: DUPILUMAB
     Dosage: 300 MG, QOW
     Route: 058

REACTIONS (9)
  - Wound haemorrhage [Unknown]
  - Condition aggravated [Unknown]
  - Ulcer haemorrhage [Unknown]
  - Condition aggravated [Unknown]
  - Scab [Unknown]
  - Contusion [Unknown]
  - Rash [Unknown]
  - Neurodermatitis [Unknown]
  - Drug ineffective [Unknown]
